FAERS Safety Report 7770348 (Version 3)
Quarter: 2014Q2

REPORT INFORMATION
  Report Type: Spontaneous
  Country: US (occurrence: None)
  Receive Date: 20101123
  Receipt Date: 20140514
  Transmission Date: 20141212
  Serious: Yes (Hospitalization)
  Sender: FDA-Public Use
  Company Number: 019258

PATIENT
  Age: 41 Year
  Sex: Female
  Weight: 47.6 kg

DRUGS (3)
  1. CIMZIA [Suspect]
     Indication: CROHN^S DISEASE
     Dosage: 200 MG 1X/2 WEEKS SUBCUTANEOUS
     Route: 058
     Dates: start: 20100730
  2. AMBIEN [Concomitant]
  3. METHOTREXATE [Concomitant]

REACTIONS (6)
  - Intestinal obstruction [None]
  - Abdominal distension [None]
  - Nausea [None]
  - Abdominal pain [None]
  - Vomiting [None]
  - Inappropriate schedule of drug administration [None]
